FAERS Safety Report 10044155 (Version 1)
Quarter: 2014Q1

REPORT INFORMATION
  Report Type: Spontaneous
  Country: ZA (occurrence: ZA)
  Receive Date: 20140328
  Receipt Date: 20140328
  Transmission Date: 20141002
  Serious: No
  Sender: FDA-Public Use
  Company Number: ZA-ELI_LILLY_AND_COMPANY-ZA201403007731

PATIENT
  Sex: Male

DRUGS (1)
  1. CYMGEN [Suspect]
     Indication: DEPRESSION
     Dosage: 120 MG, UNKNOWN
     Route: 065
     Dates: start: 201402, end: 201403

REACTIONS (1)
  - Hepatic enzyme increased [Not Recovered/Not Resolved]
